FAERS Safety Report 9125006 (Version 1)
Quarter: 2013Q1

REPORT INFORMATION
  Report Type: Spontaneous
  Country: GB (occurrence: GB)
  Receive Date: 20130121
  Receipt Date: 20130121
  Transmission Date: 20140127
  Serious: Yes (Other)
  Sender: FDA-Public Use
  Company Number: PHHY2013GB004418

PATIENT
  Age: 65 Year
  Sex: Male

DRUGS (11)
  1. OXALIPLATIN [Suspect]
     Indication: CHEMOTHERAPY
     Route: 042
     Dates: start: 20080624, end: 20081216
  2. IRINOTECAN [Suspect]
     Indication: CHEMOTHERAPY
     Route: 065
  3. FLUOROURACIL EBEWE [Suspect]
     Indication: CHEMOTHERAPY
     Route: 065
  4. FOLINIC ACID [Suspect]
     Indication: CHEMOTHERAPY
     Route: 065
  5. ONDANSETRON [Concomitant]
     Indication: ANTIEMETIC SUPPORTIVE CARE
     Dosage: 8 MG
     Route: 040
     Dates: start: 20080916
  6. DEXAMETHASONE [Concomitant]
     Indication: ANTIEMETIC SUPPORTIVE CARE
     Dosage: 4 MG, BID
     Route: 048
     Dates: start: 20080708
  7. METOCLOPRAMIDE [Concomitant]
     Route: 048
  8. LOPERAMIDE [Concomitant]
     Route: 048
  9. PIRITON [Concomitant]
     Indication: ANTIEMETIC SUPPORTIVE CARE
  10. AUGMENTIN [Concomitant]
     Dosage: 250 MG, QD
     Route: 048
     Dates: start: 200902
  11. PREDNISOLONE [Concomitant]
     Dates: start: 20090205

REACTIONS (14)
  - Haemorrhage [Recovered/Resolved]
  - Oedema peripheral [Recovered/Resolved]
  - Lip ulceration [Recovered/Resolved]
  - Mucosal inflammation [Recovered/Resolved]
  - Neuropathy peripheral [Recovered/Resolved]
  - Dyspnoea [Recovered/Resolved]
  - Constipation [Recovered/Resolved]
  - Lacrimation increased [Recovered/Resolved]
  - Diarrhoea [Recovered/Resolved]
  - Lethargy [Recovered/Resolved]
  - Pruritus [Recovered/Resolved]
  - Epistaxis [Recovered/Resolved]
  - Anaemia [Recovered/Resolved]
  - Neutrophil count decreased [Recovered/Resolved]
